FAERS Safety Report 8113921-3 (Version None)
Quarter: 2012Q1

REPORT INFORMATION
  Report Type: 
  Country: None (occurrence: None)
  Receive Date: 20120203
  Receipt Date: 20120124
  Transmission Date: 20120608
  Serious: Yes (Other)
  Sender: FDA-Public Use
  Company Number: MX-ROCHE-1033604

PATIENT
  Sex: Female
  Weight: 57 kg

DRUGS (2)
  1. DIANE [Concomitant]
     Indication: ORAL CONTRACEPTION
     Route: 048
     Dates: start: 20111213, end: 20120105
  2. ISOTRETINOIN [Suspect]
     Indication: ACNE
     Route: 048
     Dates: start: 20111218, end: 20120105

REACTIONS (5)
  - PREGNANCY [None]
  - HAEMATURIA [None]
  - MATERNAL EXPOSURE DURING PREGNANCY [None]
  - DEHYDRATION [None]
  - PREGNANCY WITH CONTRACEPTIVE DEVICE [None]
